FAERS Safety Report 14169900 (Version 3)
Quarter: 2017Q4

REPORT INFORMATION
  Report Type: Spontaneous
  Country: CH (occurrence: CH)
  Receive Date: 20171108
  Receipt Date: 20171115
  Transmission Date: 20180321
  Serious: Yes (Hospitalization, Other)
  Sender: FDA-Public Use
  Company Number: CH-MYLANLABS-2017M1070080

PATIENT
  Age: 75 Year
  Sex: Female
  Weight: 80.1 kg

DRUGS (8)
  1. TOREM 5, TABLETTEN [Suspect]
     Active Substance: TORSEMIDE
     Indication: CARDIAC FAILURE
     Route: 048
     Dates: end: 20170514
  2. MARCOUMAR [Concomitant]
     Active Substance: PHENPROCOUMON
     Route: 048
  3. CONCOR [Concomitant]
     Active Substance: BISOPROLOL FUMARATE
     Route: 048
  4. COVERSUM N [Suspect]
     Active Substance: PERINDOPRIL
     Indication: CARDIAC FAILURE
     Route: 048
     Dates: end: 20170514
  5. ATORVASTATIN PFIZER [Concomitant]
     Active Substance: ATORVASTATIN
     Route: 048
  6. LYRICA [Concomitant]
     Active Substance: PREGABALIN
     Route: 048
  7. IALUGEN PLUS [Concomitant]
     Route: 061
  8. LIDOCAINE W/TETRACAINE [Concomitant]
     Active Substance: LIDOCAINE\TETRACAINE
     Route: 061

REACTIONS (3)
  - Fatigue [Unknown]
  - Acute kidney injury [Recovered/Resolved]
  - Anuria [Recovered/Resolved]

NARRATIVE: CASE EVENT DATE: 20170507
